FAERS Safety Report 4507382-0 (Version None)
Quarter: 2004Q4

REPORT INFORMATION
  Report Type: 
  Country: None (occurrence: None)
  Receive Date: 20041118
  Receipt Date: 20041105
  Transmission Date: 20050328
  Serious: Yes (Other)
  Sender: FDA-Public Use
  Company Number: 2004089487

PATIENT
  Age: 70 Year
  Sex: Male
  Weight: 108.8633 kg

DRUGS (4)
  1. CELEBREX [Suspect]
     Indication: HEADACHE
     Dosage: 200 MG (200 MG, QD INTERVAL: EVERY DAY), ORAL
     Route: 048
     Dates: start: 20040101, end: 20041104
  2. ESOMEPRAZOLE (ESOMEPRAZOLE) [Concomitant]
  3. DUTASTERIDE (DUTASTERIDE) [Concomitant]
  4. TAMSULOSIN (TAMSULOSIN) [Concomitant]

REACTIONS (2)
  - GLOMERULAR FILTRATION RATE ABNORMAL [None]
  - RENAL IMPAIRMENT [None]
